FAERS Safety Report 26184076 (Version 1)
Quarter: 2025Q4

REPORT INFORMATION
  Report Type: Spontaneous
  Country: US (occurrence: US)
  Receive Date: 20251222
  Receipt Date: 20251222
  Transmission Date: 20260118
  Serious: No
  Sender: ROCHE
  Company Number: US-ROCHE-10000458551

PATIENT
  Sex: Female

DRUGS (3)
  1. XOLAIR [Suspect]
     Active Substance: OMALIZUMAB
     Indication: Idiopathic urticaria
     Dosage: STRENGTH: 300 MG/2 ML
     Route: 058
     Dates: start: 202509
  2. ADALIMUMAB-ADAZ PENS INJ [Concomitant]
  3. HYRIMOZ [Concomitant]
     Active Substance: ADALIMUMAB-ADAZ

REACTIONS (3)
  - Lip swelling [Unknown]
  - Product dose omission issue [Unknown]
  - Device defective [Unknown]
